FAERS Safety Report 23241307 (Version 2)
Quarter: 2024Q1

REPORT INFORMATION
  Report Type: Spontaneous
  Country: ES (occurrence: ES)
  Receive Date: 20231129
  Receipt Date: 20240308
  Transmission Date: 20240410
  Serious: Yes (Other)
  Sender: FDA-Public Use
  Company Number: ES-SUN PHARMACEUTICAL INDUSTRIES LTD-2023RR-421012

PATIENT
  Age: 23 Year
  Sex: Female

DRUGS (9)
  1. RISPERIDONE [Suspect]
     Active Substance: RISPERIDONE
     Indication: Psychotic disorder
     Dosage: UNK
     Route: 065
  2. ARIPIPRAZOLE [Suspect]
     Active Substance: ARIPIPRAZOLE
     Indication: Psychotic disorder
     Dosage: UNK
     Route: 065
  3. OLANZAPINE [Suspect]
     Active Substance: OLANZAPINE
     Indication: Psychotic disorder
     Dosage: UNK
     Route: 065
  4. LITHIUM [Suspect]
     Active Substance: LITHIUM
     Indication: Psychotic disorder
     Dosage: UP TO 800 MILLIGRAM, DAILY
     Route: 065
  5. CLOZAPINE [Suspect]
     Active Substance: CLOZAPINE
     Indication: Psychotic disorder
     Dosage: UP TO 25 MILLIGRAM, DAILY
     Route: 065
  6. VALPROATE [Suspect]
     Active Substance: VALPROIC ACID
     Indication: Psychotic disorder
     Dosage: 400 MILLIGRAM, DAILY
     Route: 065
  7. LAMOTRIGINE [Suspect]
     Active Substance: LAMOTRIGINE
     Indication: Psychotic disorder
     Dosage: UP TO 75 MILLIGRAM, DAILY
     Route: 065
  8. AMISULPRIDE [Suspect]
     Active Substance: AMISULPRIDE
     Indication: Psychotic disorder
     Dosage: 600 MILLIGRAM, DAILY
     Route: 065
  9. QUETIAPINE [Suspect]
     Active Substance: QUETIAPINE
     Indication: Psychotic disorder
     Dosage: UP TO 75 MG/DAY
     Route: 005

REACTIONS (10)
  - Therapeutic product effect incomplete [Unknown]
  - Galactorrhoea [Unknown]
  - Nystagmus [Unknown]
  - Oedema [Unknown]
  - Gait disturbance [Unknown]
  - Somnolence [Unknown]
  - Salivary hypersecretion [Unknown]
  - Rash [Unknown]
  - Drug ineffective [Unknown]
  - Disease recurrence [Recovering/Resolving]
